FAERS Safety Report 6831537-3 (Version None)
Quarter: 2010Q3

REPORT INFORMATION
  Report Type: 
  Country: None (occurrence: None)
  Receive Date: 20100712
  Receipt Date: 20100629
  Transmission Date: 20110219
  Serious: Yes (Hospitalization, Other)
  Sender: FDA-Public Use
  Company Number: PHHY2010BR43240

PATIENT
  Sex: Male

DRUGS (11)
  1. DIOVAN [Suspect]
     Indication: HYPERTENSION
     Dosage: 1 TABLET (320 MG) A DAY
     Route: 048
  2. SELOZOK [Concomitant]
     Indication: CARDIAC DISORDER
     Dosage: 1 TABLET (25 MG) A DAY
     Route: 048
     Dates: start: 20070101, end: 20100629
  3. MONOCORDIL [Concomitant]
     Indication: CARDIAC DISORDER
     Dosage: 2 TABLETS (20 MG) A DAY
     Route: 048
     Dates: start: 20070101
  4. SIMVASTATIN [Concomitant]
     Indication: CORONARY ARTERY OCCLUSION
     Dosage: 2 TABLETS (40 MG) A DAY
     Route: 048
     Dates: start: 20070101, end: 20100629
  5. OMEPRAZOLE [Concomitant]
     Indication: GASTRIC ULCER
     Dosage: 1 TABLET (20 MG) A DAY
     Route: 048
     Dates: start: 20070101, end: 20100629
  6. ASPIRIN [Concomitant]
     Indication: ANTICOAGULANT THERAPY
     Dosage: 1 TABLET (100 MG) A DAY
     Route: 048
     Dates: start: 20070101
  7. SELOKEN [Concomitant]
     Indication: CARDIAC DISORDER
     Dosage: UNK
     Route: 048
     Dates: start: 20070101
  8. CLOPIDOGREL BISULFATE [Concomitant]
     Indication: CARDIAC DISORDER
     Dosage: 75 MG,1 TABLET DAILY
     Route: 048
     Dates: start: 20070101
  9. INSULIN [Concomitant]
     Indication: TYPE 2 DIABETES MELLITUS
     Dosage: 30 UI A DAY
     Route: 058
     Dates: start: 20050101
  10. METFORMIN [Concomitant]
     Indication: TYPE 2 DIABETES MELLITUS
     Dosage: 2 TABLETS (850 MG) A DAY
     Route: 048
     Dates: start: 20050101
  11. RIVOTRIL [Concomitant]
     Indication: INSOMNIA
     Dosage: 1 TABLET (0.5 MG) A DAY
     Route: 048

REACTIONS (17)
  - ACUTE MYOCARDIAL INFARCTION [None]
  - ANGIOPLASTY [None]
  - BLOOD POTASSIUM DECREASED [None]
  - BLOOD PRESSURE INADEQUATELY CONTROLLED [None]
  - CEREBROVASCULAR ACCIDENT [None]
  - CEREBROVASCULAR DISORDER [None]
  - CHEST PAIN [None]
  - CORONARY ARTERY OCCLUSION [None]
  - GAIT DISTURBANCE [None]
  - HYPERTENSION [None]
  - HYPOAESTHESIA [None]
  - LEFT VENTRICULAR DYSFUNCTION [None]
  - NECROSIS [None]
  - PROTEINURIA [None]
  - RENAL ARTERY OCCLUSION [None]
  - RENAL ARTERY STENT PLACEMENT [None]
  - RENAL FAILURE ACUTE [None]
